FAERS Safety Report 11645458 (Version 2)
Quarter: 2015Q4

REPORT INFORMATION
  Report Type: Report from Study
  Country: FR (occurrence: FR)
  Receive Date: 20151020
  Receipt Date: 20151124
  Transmission Date: 20160304
  Serious: Yes (Other)
  Sender: FDA-Public Use
  Company Number: FR-INCYTE CORPORATION-2015IN005281

PATIENT
  Age: 64 Year
  Sex: Female

DRUGS (1)
  1. JAKAFI [Suspect]
     Active Substance: RUXOLITINIB
     Indication: MYELOFIBROSIS
     Dosage: UNK
     Route: 065
     Dates: start: 20110707

REACTIONS (2)
  - Dermo-hypodermitis [Recovered/Resolved]
  - Dermo-hypodermitis [Recovered/Resolved]

NARRATIVE: CASE EVENT DATE: 20140612
